FAERS Safety Report 19819546 (Version 2)
Quarter: 2021Q3

REPORT INFORMATION
  Report Type: Spontaneous
  Country: US (occurrence: US)
  Receive Date: 20210913
  Receipt Date: 20210917
  Transmission Date: 20211014
  Serious: Yes (Other)
  Sender: FDA-Public Use
  Company Number: US-BAUSCH-BL-2021-029915

PATIENT
  Age: 59 Year
  Sex: Female

DRUGS (1)
  1. LUMIFY [Suspect]
     Active Substance: BRIMONIDINE TARTRATE
     Indication: PRODUCT USED FOR UNKNOWN INDICATION
     Dosage: ONE DROP IN EACH EYE A DAY
     Route: 047

REACTIONS (4)
  - Product label issue [Unknown]
  - Headache [Not Recovered/Not Resolved]
  - Instillation site haemorrhage [Recovering/Resolving]
  - Instillation site pain [Not Recovered/Not Resolved]
